APPROVED DRUG PRODUCT: HEPARIN LOCK FLUSH
Active Ingredient: HEPARIN SODIUM
Strength: 10 UNITS/ML
Dosage Form/Route: INJECTABLE;INJECTION
Application: A087903 | Product #001
Applicant: SOLOPAK MEDICAL PRODUCTS INC
Approved: Apr 20, 1983 | RLD: No | RS: No | Type: DISCN